FAERS Safety Report 7866087-9 (Version None)
Quarter: 2011Q4

REPORT INFORMATION
  Report Type: 
  Country: None (occurrence: None)
  Receive Date: 20111028
  Receipt Date: 20110420
  Transmission Date: 20120403
  Serious: No
  Sender: FDA-Public Use
  Company Number: US-GLAXOSMITHKLINE-A0923780A

PATIENT
  Age: 63 Year
  Sex: Female

DRUGS (3)
  1. IPRATROPIUM BROMIDE [Concomitant]
  2. ALBUTEROL [Concomitant]
  3. ADVAIR DISKUS 100/50 [Suspect]
     Indication: CHRONIC OBSTRUCTIVE PULMONARY DISEASE
     Dosage: 1PUFF TWICE PER DAY
     Route: 055
     Dates: start: 20010401

REACTIONS (5)
  - ASTHENIA [None]
  - DIZZINESS [None]
  - COUGH [None]
  - CHEST DISCOMFORT [None]
  - DRUG INEFFECTIVE [None]
